FAERS Safety Report 9042821 (Version 1)
Quarter: 2013Q1

REPORT INFORMATION
  Report Type: Report from Study
  Country: US (occurrence: US)
  Receive Date: 20130129
  Receipt Date: 20130129
  Transmission Date: 20140127
  Serious: No
  Sender: FDA-Public Use
  Company Number: US-ABBOTT-11P-163-0884334-00

PATIENT
  Age: 64 Year
  Sex: Female

DRUGS (13)
  1. HUMIRA 40 MG/0.8 ML PEN [Suspect]
     Indication: CROHN^S DISEASE
     Dosage: LOADING DOSE
     Dates: start: 20111214
  2. HUMIRA 40 MG/0.8 ML PEN [Suspect]
     Dates: start: 20120107
  3. HUMIRA 40 MG/0.8 ML PEN [Suspect]
     Dates: start: 20120115
  4. HUMIRA 40 MG/0.8 ML PEN [Suspect]
  5. PREDNISONE [Concomitant]
     Indication: CROHN^S DISEASE
     Dates: end: 201112
  6. PREDNISONE [Concomitant]
  7. PENTASA [Concomitant]
     Indication: CROHN^S DISEASE
  8. SPIRONOLACTONE [Concomitant]
     Indication: BLOOD PRESSURE
  9. CENTRUM SILVER [Concomitant]
     Indication: PRODUCT USED FOR UNKNOWN INDICATION
  10. CALCIUM [Concomitant]
     Indication: PRODUCT USED FOR UNKNOWN INDICATION
  11. FISH OIL [Concomitant]
     Indication: PRODUCT USED FOR UNKNOWN INDICATION
  12. ENZYME [Concomitant]
     Indication: DYSPEPSIA
     Dosage: PRIOR TO EACH MEAL
  13. ZEGERID [Concomitant]
     Indication: OESOPHAGEAL DISORDER
     Dosage: DAILY

REACTIONS (22)
  - Injection site pain [Recovered/Resolved]
  - Injection site pain [Not Recovered/Not Resolved]
  - Feeling cold [Recovered/Resolved]
  - Tremor [Recovered/Resolved]
  - Cyanosis [Recovered/Resolved]
  - Nail discolouration [Recovered/Resolved]
  - Pyrexia [Unknown]
  - White blood cell count increased [Unknown]
  - Swelling face [Unknown]
  - Candida infection [Recovering/Resolving]
  - Acne [Recovering/Resolving]
  - Tongue blistering [Recovering/Resolving]
  - Asthenia [Recovered/Resolved]
  - Ill-defined disorder [Unknown]
  - Pain [Recovering/Resolving]
  - Oropharyngeal pain [Recovering/Resolving]
  - Nasopharyngitis [Recovering/Resolving]
  - Pyrexia [Recovering/Resolving]
  - Rhinorrhoea [Recovering/Resolving]
  - Acne [Recovering/Resolving]
  - Cyanosis [Unknown]
  - Adrenal insufficiency [Unknown]
